FAERS Safety Report 8974509 (Version 1)
Quarter: 2012Q4

REPORT INFORMATION
  Report Type: 
  Country: US (occurrence: US)
  Receive Date: 20121220
  Receipt Date: 20121220
  Transmission Date: 20130627
  Serious: No
  Sender: FDA-Public Use
  Company Number: US-009507513-1212USA003211

PATIENT
  Age: 7 None
  Sex: Male

DRUGS (2)
  1. DULERA [Suspect]
     Indication: ASTHMA
     Dosage: 100/5mcg
     Route: 055
     Dates: start: 20121008, end: 20121015
  2. DULERA [Suspect]
     Dosage: 100/5mcg
     Route: 055
     Dates: start: 2012, end: 20121126

REACTIONS (7)
  - Dyspnoea [Recovering/Resolving]
  - Wheezing [Recovering/Resolving]
  - Off label use [Unknown]
  - Drug administered to patient of inappropriate age [Unknown]
  - Dyspnoea [Unknown]
  - Wheezing [Unknown]
  - Dysphonia [Unknown]
